FAERS Safety Report 4368681-9 (Version None)
Quarter: 2004Q2

REPORT INFORMATION
  Report Type: 
  Country: None (occurrence: None)
  Receive Date: 20040602
  Receipt Date: 20040514
  Transmission Date: 20050107
  Serious: Yes (Hospitalization)
  Sender: FDA-Public Use
  Company Number: MK200405-0280-1

PATIENT
  Age: 78 Year
  Sex: Female

DRUGS (9)
  1. ANAFRANIL CAP [Suspect]
     Dosage: 75MG, DAILY
     Dates: end: 20040418
  2. MIANSERIN HCL [Suspect]
     Dosage: 40MG DAILY
     Dates: end: 20040418
  3. PURSENNID [Concomitant]
  4. MAGNESIUM OXIDE [Concomitant]
  5. HALCION [Concomitant]
  6. GASCON [Concomitant]
  7. DORAL [Concomitant]
  8. BENZALIN [Concomitant]
  9. DAIKENTYUTO [Concomitant]

REACTIONS (12)
  - ABNORMAL BEHAVIOUR [None]
  - ANXIETY [None]
  - BEDRIDDEN [None]
  - CHEST DISCOMFORT [None]
  - DEPRESSION [None]
  - DYSPNOEA [None]
  - DYSURIA [None]
  - FALL [None]
  - IMPATIENCE [None]
  - PNEUMONIA ASPIRATION [None]
  - SEROTONIN SYNDROME [None]
  - SUBDURAL HAEMATOMA [None]
